FAERS Safety Report 6681103-8 (Version None)
Quarter: 2010Q2

REPORT INFORMATION
  Report Type: 
  Country: None (occurrence: None)
  Receive Date: 20100414
  Receipt Date: 20100323
  Transmission Date: 20101027
  Serious: Yes (Hospitalization)
  Sender: FDA-Public Use
  Company Number: IL-ROCHE-686520

PATIENT
  Sex: Female
  Weight: 79 kg

DRUGS (17)
  1. TOCILIZUMAB [Suspect]
     Indication: RHEUMATOID ARTHRITIS
     Dosage: FORM: INFUSION SOLUTION
     Route: 042
     Dates: start: 20060109
  2. TOCILIZUMAB [Suspect]
     Route: 042
     Dates: start: 20091026
  3. TOCILIZUMAB [Suspect]
     Route: 042
     Dates: start: 20091123
  4. TOCILIZUMAB [Suspect]
     Route: 042
     Dates: start: 20091221
  5. TOCILIZUMAB [Suspect]
     Route: 042
     Dates: start: 20100121, end: 20100215
  6. BLINDED TOCILIZUMAB [Suspect]
     Indication: RHEUMATOID ARTHRITIS
     Dosage: DOSE BLINDED. AS PER PROTOCOL THE PATIENT WAS PREVIOUSLY ENROLLED IN BLINDED STUDY WA17822.
     Route: 042
  7. METHOTREXATE [Concomitant]
     Dosage: TOTAL DAILY DOSE REPORTED AS 15 MG PER WEEK
     Route: 030
     Dates: start: 20060517, end: 20100228
  8. METHOTREXATE [Concomitant]
     Dosage: TOTAL DAILY DOSE REPORTED AS 15 MG PER WEEK
     Route: 030
     Dates: start: 20100314
  9. FOLIC ACID [Concomitant]
     Dosage: START DATE: PREVIOUS,TOTAL DAILY DOSE REPORTED AS 05 MG PER WEEK
  10. CALCIUM CARBONATE/VITAMIN D3 [Concomitant]
     Dosage: START DATE REPORTED AS PREVIOUS.
  11. OMEPRAZOLE [Concomitant]
     Dosage: START DATE REPORTED AS PREVIOUS.
  12. DILTIAZEM HCL [Concomitant]
     Dosage: START DATE REPORTED AS PREVIOUS.
  13. LYTEERS [Concomitant]
     Dosage: START DATE REPORTED AS PREVIOUS, TOTAL DAILY DOSE: 3 GTT
  14. FLUTICASONE PROPIONATE [Concomitant]
     Dosage: REPORTED AS: ONE PUFF AS REQUIRED
     Dates: start: 20070503
  15. DESLORATADINE [Concomitant]
     Dates: start: 20070503
  16. PREDNISOLONE [Concomitant]
     Dates: start: 20091001
  17. VITAMINE D [Concomitant]
     Dosage: TOTAL DAILY DOSE 20 GU
     Dates: start: 20090216

REACTIONS (1)
  - BREAST CANCER [None]
